FAERS Safety Report 16702383 (Version 1)
Quarter: 2019Q3

REPORT INFORMATION
  Report Type: Spontaneous
  Country: US (occurrence: US)
  Receive Date: 20190813
  Receipt Date: 20190813
  Transmission Date: 20191004
  Serious: Yes (Hospitalization)
  Sender: FDA-Public Use
  Company Number: None

PATIENT
  Age: 22 Year
  Sex: Female
  Weight: 50 kg

DRUGS (1)
  1. PANZYGA [Suspect]
     Active Substance: HUMAN IMMUNOGLOBULIN G
     Indication: TRANSPLANT REJECTION
     Dosage: ?          OTHER FREQUENCY:X2 DOSES MONTHLY;?
     Route: 042
     Dates: start: 20190612, end: 20190612

REACTIONS (4)
  - Diarrhoea [None]
  - Vomiting [None]
  - Pyrexia [None]
  - Rash [None]

NARRATIVE: CASE EVENT DATE: 20190612
